FAERS Safety Report 9895208 (Version 1)
Quarter: 2014Q1

REPORT INFORMATION
  Report Type: Spontaneous
  Country: US (occurrence: US)
  Receive Date: 20140213
  Receipt Date: 20140213
  Transmission Date: 20141002
  Serious: No
  Sender: FDA-Public Use
  Company Number: US-BRISTOL-MYERS SQUIBB COMPANY-19347277

PATIENT
  Age: 53 Year
  Sex: Female
  Weight: 68.93 kg

DRUGS (13)
  1. ABATACEPT SUBQ INJECTION 125MG/ML [Suspect]
     Dosage: 1DF=125MG/ML-4 PACK
     Route: 058
  2. METHOTREXATE [Concomitant]
  3. CENTRUM [Concomitant]
  4. TYLENOL + CODEINE NO. 3 [Concomitant]
  5. LEUCOVORIN CALCIUM TABS [Concomitant]
  6. NABUMETONE [Concomitant]
     Dosage: TABS
  7. VENLAFAXINE HCL [Concomitant]
     Dosage: CAPS
  8. ADVAIR DISKUS [Concomitant]
     Dosage: 1DF=100/50-UNITS NOS
  9. CLONIDINE [Concomitant]
  10. ZAFIRLUKAST [Concomitant]
     Dosage: TABS
  11. FISH OIL [Concomitant]
     Dosage: CAPS
  12. CALCIUM [Concomitant]
     Dosage: 1DF=500-UNITS NOS?TABS
  13. BLACK COHOSH [Concomitant]
     Dosage: TABS

REACTIONS (1)
  - Decreased appetite [Unknown]
